FAERS Safety Report 9734060 (Version 2)
Quarter: 2014Q1

REPORT INFORMATION
  Report Type: Report from Study
  Country: JP (occurrence: JP)
  Receive Date: 20131205
  Receipt Date: 20140106
  Transmission Date: 20141002
  Serious: Yes (Hospitalization)
  Sender: FDA-Public Use
  Company Number: JP-MYLANLABS-2013S1026829

PATIENT
  Age: 68 Year
  Sex: Male
  Weight: 47.2 kg

DRUGS (9)
  1. EPIRUBICIN [Suspect]
     Indication: HEPATOCELLULAR CARCINOMA
     Route: 013
     Dates: start: 20131021, end: 20131021
  2. TSU-68 [Suspect]
     Indication: HEPATOCELLULAR CARCINOMA
     Route: 048
     Dates: start: 20131107, end: 201311
  3. JANUVIA [Concomitant]
     Indication: DIABETES MELLITUS
     Dosage: AFTER BREAKFAST
     Route: 048
  4. FLIVAS [Concomitant]
     Indication: BENIGN PROSTATIC HYPERPLASIA
     Route: 048
  5. FERROMIA [Concomitant]
     Indication: IRON DEFICIENCY ANAEMIA
     Dosage: AFTER SUPPER
     Route: 048
  6. AMINOLEBAN EN [Concomitant]
     Indication: HYPOALBUMINAEMIA
     Dosage: BEFORE SLEEP
     Route: 048
  7. LIVACT /07401301/ [Concomitant]
     Indication: HYPOALBUMINAEMIA
     Dosage: AFTER EVERY MEAL
     Route: 048
  8. OLMETEC [Concomitant]
     Indication: HYPERTENSION
     Dosage: IN THE MORNING
     Route: 048
  9. MAGNESIUM OXIDE [Concomitant]
     Indication: CONSTIPATION
     Dosage: AFTER EVERY MEAL
     Route: 048

REACTIONS (3)
  - Decreased appetite [Recovering/Resolving]
  - Post procedural bile leak [Recovering/Resolving]
  - Myocardial infarction [Recovering/Resolving]
